FAERS Safety Report 4718606-9 (Version None)
Quarter: 2005Q3

REPORT INFORMATION
  Report Type: 
  Country: None (occurrence: None)
  Receive Date: 20050720
  Receipt Date: 20050718
  Transmission Date: 20060218
  Serious: Yes (Hospitalization)
  Sender: FDA-Public Use
  Company Number: US-GLAXOSMITHKLINE-A0566715A

PATIENT
  Sex: Male

DRUGS (1)
  1. PAXIL [Suspect]
     Route: 065
     Dates: end: 20020101

REACTIONS (10)
  - BRUXISM [None]
  - CONVULSION [None]
  - CONVULSIONS LOCAL [None]
  - DRUG WITHDRAWAL SYNDROME [None]
  - EYE PAIN [None]
  - EYE ROLLING [None]
  - IMMOBILE [None]
  - PARAESTHESIA [None]
  - RESPIRATORY ARREST [None]
  - TREMOR [None]
